FAERS Safety Report 6171166-0 (Version None)
Quarter: 2009Q2

REPORT INFORMATION
  Report Type: 
  Country: None (occurrence: None)
  Receive Date: 20090429
  Receipt Date: 20090421
  Transmission Date: 20091009
  Serious: Yes (Death, Hospitalization)
  Sender: FDA-Public Use
  Company Number: NL-ELI_LILLY_AND_COMPANY-NL200904001298

PATIENT
  Sex: Male
  Weight: 45 kg

DRUGS (11)
  1. CYMBALTA [Suspect]
     Indication: DEPRESSION
     Dosage: 30 MG, DAILY (1/D)
     Route: 065
     Dates: start: 20080327
  2. CYMBALTA [Suspect]
     Dosage: 60 MG, DAILY (1/D)
     Route: 065
     Dates: start: 20080414, end: 20080415
  3. ATROVENT [Concomitant]
     Dosage: UNK, 3/D
     Route: 055
  4. SELEKTINE [Concomitant]
     Dosage: 40 MG, DAILY (1/D)
     Route: 065
  5. ACENOCOUMAROL [Concomitant]
     Dosage: UNK, UNKNOWN
     Route: 065
  6. DICLOFENAC [Concomitant]
     Dosage: 50 MG, AS NEEDED
     Route: 065
  7. METFORMIN HCL [Concomitant]
     Dosage: 500 MG, 2/D
     Route: 065
  8. LORMETAZEPAM [Concomitant]
     Dosage: 2 MG, DAILY (1/D)
     Route: 065
  9. REMERON [Concomitant]
     Dosage: UNK, UNKNOWN
     Route: 065
  10. REMERON [Concomitant]
     Dosage: 45 MG, UNKNOWN
     Route: 065
  11. OXAZEPAM [Concomitant]
     Dosage: UNK, UNKNOWN
     Route: 065

REACTIONS (8)
  - ANXIETY [None]
  - ASPHYXIA [None]
  - CHEST PAIN [None]
  - COMPLETED SUICIDE [None]
  - FEELING ABNORMAL [None]
  - HYPERVENTILATION [None]
  - PANIC ATTACK [None]
  - WEIGHT DECREASED [None]
